FAERS Safety Report 5161965-6 (Version None)
Quarter: 2006Q4

REPORT INFORMATION
  Report Type: 
  Country: None (occurrence: None)
  Receive Date: 20061121
  Receipt Date: 20061017
  Transmission Date: 20070319
  Serious: Yes (Death)
  Sender: FDA-Public Use
  Company Number: A03200606370

PATIENT
  Age: 49 Year
  Sex: Female

DRUGS (1)
  1. PLAVIX [Suspect]
     Dosage: 75 MG QD - ORAL
     Route: 048
     Dates: end: 20061007

REACTIONS (3)
  - CARDIAC ARREST [None]
  - MALAISE [None]
  - VENTRICULAR FIBRILLATION [None]
